FAERS Safety Report 7795221-4 (Version None)
Quarter: 2011Q3

REPORT INFORMATION
  Report Type: 
  Country: None (occurrence: None)
  Receive Date: 20110930
  Receipt Date: 20110922
  Transmission Date: 20111222
  Serious: Yes (Disabling, Other)
  Sender: FDA-Public Use
  Company Number: AUR-APL-2011-04565

PATIENT
  Age: 57 Year
  Sex: Male
  Weight: 101 kg

DRUGS (4)
  1. SIMVASTATIN [Suspect]
     Indication: PRODUCT USED FOR UNKNOWN INDICATION
     Dosage: 40 MG (40 MG, 1 IN 1 D)
     Dates: start: 20110505, end: 20110725
  2. ATENOLOL [Concomitant]
  3. OMEPRAZOLE [Concomitant]
  4. ASPIRIN [Concomitant]

REACTIONS (4)
  - MUSCLE SPASMS [None]
  - ACROCHORDON [None]
  - RASH [None]
  - AMNESIA [None]
